FAERS Safety Report 15545135 (Version 2)
Quarter: 2018Q4

REPORT INFORMATION
  Report Type: Report from Study
  Country: ZA (occurrence: ZA)
  Receive Date: 20181024
  Receipt Date: 20181122
  Transmission Date: 20190205
  Serious: Yes (Hospitalization, Other)
  Sender: FDA-Public Use
  Company Number: ZA-BRISTOL-MYERS SQUIBB COMPANY-BMS-2017-046989

PATIENT
  Age: 73 Year
  Sex: Female

DRUGS (2)
  1. ABATACEPT [Suspect]
     Active Substance: ABATACEPT
     Indication: RHEUMATOID ARTHRITIS
     Dosage: 125 MG, QWK
     Route: 058
     Dates: start: 20160801
  2. ABATACEPT [Suspect]
     Active Substance: ABATACEPT
     Indication: RHEUMATOID ARTHRITIS
     Dosage: 750 MG, QMO
     Route: 042
     Dates: start: 20140101, end: 201608

REACTIONS (13)
  - Sensory loss [Not Recovered/Not Resolved]
  - Nerve compression [Unknown]
  - Back pain [Unknown]
  - Pain in extremity [Recovered/Resolved]
  - Back disorder [Unknown]
  - Respiratory tract infection [Recovering/Resolving]
  - Lower respiratory tract infection [Recovered/Resolved]
  - Arthropathy [Unknown]
  - Balance disorder [Not Recovered/Not Resolved]
  - Cough [Unknown]
  - Nasopharyngitis [Unknown]
  - Tooth disorder [Recovering/Resolving]
  - Musculoskeletal stiffness [Recovering/Resolving]

NARRATIVE: CASE EVENT DATE: 20170526
